FAERS Safety Report 7803447-6 (Version None)
Quarter: 2011Q4

REPORT INFORMATION
  Report Type: 
  Country: None (occurrence: None)
  Receive Date: 20111007
  Receipt Date: 20111004
  Transmission Date: 20120403
  Serious: Yes (Hospitalization)
  Sender: FDA-Public Use
  Company Number: CA-ABBOTT-11P-028-0857725-00

PATIENT
  Sex: Female
  Weight: 62 kg

DRUGS (6)
  1. HUMIRA [Suspect]
     Indication: CROHN'S DISEASE
     Route: 058
     Dates: start: 20110202, end: 20110602
  2. HUMIRA [Suspect]
     Dosage: INCREASED TO 40MG WEEKLY
     Dates: start: 20110602, end: 20110919
  3. LANSOPRAZOLE [Concomitant]
     Indication: PRODUCT USED FOR UNKNOWN INDICATION
     Route: 048
     Dates: start: 20110815
  4. PREVACID [Concomitant]
     Indication: HYPERCHLORHYDRIA
     Route: 048
     Dates: start: 20090101
  5. PILL FOR BLADDER CONTROL [Concomitant]
     Indication: HYPERTONIC BLADDER
     Route: 048
     Dates: start: 20110815
  6. CO ETIDROCAL [Concomitant]
     Indication: OSTEOPOROSIS
     Route: 048
     Dates: start: 20090101

REACTIONS (3)
  - GASTROINTESTINAL INFLAMMATION [None]
  - INTESTINAL OBSTRUCTION [None]
  - DRUG INEFFECTIVE [None]
